FAERS Safety Report 9407361 (Version 5)
Quarter: 2013Q3

REPORT INFORMATION
  Report Type: Report from Study
  Country: JP (occurrence: JP)
  Receive Date: 20130718
  Receipt Date: 20130917
  Transmission Date: 20140515
  Serious: Yes (Death, Other)
  Sender: FDA-Public Use
  Company Number: JP-OTSUKA-JP-2013-12562

PATIENT
  Age: 77 Year
  Sex: Female

DRUGS (7)
  1. SAMSCA [Suspect]
     Indication: FLUID RETENTION
     Dosage: 15 MG MILLIGRAM(S), QAM
     Route: 048
     Dates: start: 20130704, end: 20130707
  2. MICARDIS [Concomitant]
     Indication: CARDIAC FAILURE
     Dosage: 20 MG MILLIGRAM(S), DAILY DOSE
     Route: 048
     Dates: end: 20130628
  3. MICARDIS [Concomitant]
     Dosage: 40 MG MILLIGRAM(S), DAILY DOSE
     Route: 048
     Dates: start: 20130629, end: 20130712
  4. ZYLORIC [Concomitant]
     Dosage: 100 MG MILLIGRAM(S), DAILY DOSE
     Route: 048
     Dates: end: 20130712
  5. MAGMITT [Concomitant]
     Dosage: 1500 MG MILLIGRAM(S), DAILY DOSE
     Route: 048
     Dates: end: 20130712
  6. ARTIST [Concomitant]
     Indication: CARDIAC FAILURE
     Dosage: 1.25 MG MILLIGRAM(S), DAILY DOSE
     Route: 048
     Dates: end: 20130712
  7. FUROSEMIDE [Concomitant]
     Indication: CARDIAC FAILURE
     Dosage: 40 MG MILLIGRAM(S), DAILY DOSE
     Route: 048
     Dates: end: 20130712

REACTIONS (4)
  - Liver disorder [Fatal]
  - Pneumonia [Unknown]
  - Hypernatraemia [Not Recovered/Not Resolved]
  - Thirst [Not Recovered/Not Resolved]
